FAERS Safety Report 21994214 (Version 1)
Quarter: 2023Q1

REPORT INFORMATION
  Report Type: Spontaneous
  Country: TR (occurrence: TR)
  Receive Date: 20230215
  Receipt Date: 20230215
  Transmission Date: 20230418
  Serious: Yes (Death, Hospitalization, Other)
  Sender: FDA-Public Use
  Company Number: TR-PFM-2023-00827

PATIENT

DRUGS (3)
  1. PROPRANOLOL [Suspect]
     Active Substance: PROPRANOLOL HYDROCHLORIDE
     Indication: Exudative retinopathy
     Dosage: UNK
     Route: 065
  2. PROPRANOLOL [Suspect]
     Active Substance: PROPRANOLOL HYDROCHLORIDE
     Indication: Off label use
  3. URSODIOL [Suspect]
     Active Substance: URSODIOL
     Indication: Exudative retinopathy
     Dosage: UNK
     Route: 065

REACTIONS (6)
  - Multiple organ dysfunction syndrome [Fatal]
  - Gastrointestinal haemorrhage [Fatal]
  - Malnutrition [Unknown]
  - Product administered to patient of inappropriate age [Unknown]
  - Product use in unapproved indication [Unknown]
  - Off label use [Unknown]
